FAERS Safety Report 8044229-2 (Version None)
Quarter: 2012Q1

REPORT INFORMATION
  Report Type: 
  Country: None (occurrence: None)
  Receive Date: 20120113
  Receipt Date: 20120105
  Transmission Date: 20120608
  Serious: Yes (Other)
  Sender: FDA-Public Use
  Company Number: US-RB-036204-12

PATIENT
  Sex: Female

DRUGS (1)
  1. SUBOXONE [Suspect]
     Indication: PRODUCT USED FOR UNKNOWN INDICATION
     Dosage: DOSING DETAILS UNKNOWN
     Route: 064
     Dates: end: 20111223

REACTIONS (3)
  - DRUG WITHDRAWAL SYNDROME NEONATAL [None]
  - CONVULSION [None]
  - FOETAL EXPOSURE DURING PREGNANCY [None]
